FAERS Safety Report 26087610 (Version 1)
Quarter: 2025Q4

REPORT INFORMATION
  Report Type: Spontaneous
  Country: EU (occurrence: EU)
  Receive Date: 20251125
  Receipt Date: 20251125
  Transmission Date: 20260118
  Serious: Yes (Other)
  Sender: PFIZER
  Company Number: EU-PFIZER INC-202500229896

PATIENT
  Age: 13 Year
  Sex: Male

DRUGS (2)
  1. NGENLA [Suspect]
     Active Substance: SOMATROGON-GHLA
     Dosage: UNK
     Dates: start: 202508, end: 202508
  2. NGENLA [Suspect]
     Active Substance: SOMATROGON-GHLA
     Dosage: UNK
     Dates: start: 20251115

REACTIONS (12)
  - Pneumonia [Unknown]
  - Seizure [Unknown]
  - Malaise [Unknown]
  - Migraine [Unknown]
  - Nausea [Unknown]
  - Fatigue [Unknown]
  - Dysgraphia [Unknown]
  - Hot flush [Unknown]
  - Tremor [Unknown]
  - Respiratory rate increased [Unknown]
  - Tinnitus [Unknown]
  - Panic attack [Unknown]

NARRATIVE: CASE EVENT DATE: 20250101
